FAERS Safety Report 12605398 (Version 1)
Quarter: 2016Q3

REPORT INFORMATION
  Report Type: Report from Study
  Country: US (occurrence: US)
  Receive Date: 20160729
  Receipt Date: 20160729
  Transmission Date: 20161109
  Serious: Yes (Life-Threatening, Other)
  Sender: FDA-Public Use
  Company Number: US-ROCHE-1154312

PATIENT
  Age: 72 Year
  Sex: Female
  Weight: 75.5 kg

DRUGS (4)
  1. VISMODEGIB [Suspect]
     Active Substance: VISMODEGIB
     Dosage: LAST DOSE RECEIVED ON 26/MAY/2011?COURSE 2
     Route: 048
     Dates: start: 20110510
  2. ETOPOSIDE. [Suspect]
     Active Substance: ETOPOSIDE
     Indication: SMALL CELL LUNG CANCER
     Dosage: LAST DOSE PRIOR TO SAE:07/APR/2011
     Route: 042
     Dates: start: 20110405, end: 20110407
  3. CISPLATIN. [Suspect]
     Active Substance: CISPLATIN
     Indication: SMALL CELL LUNG CANCER
     Route: 042
     Dates: start: 20110405, end: 20110405
  4. VISMODEGIB [Suspect]
     Active Substance: VISMODEGIB
     Indication: SMALL CELL LUNG CANCER
     Dosage: LAST DOSE RECEIVED ON 26/MAY/2011?COURSE 1
     Route: 048
     Dates: start: 20110405

REACTIONS (5)
  - Hyponatraemia [Unknown]
  - White blood cell count decreased [Unknown]
  - Dyspnoea [Unknown]
  - Hyperglycaemia [Unknown]
  - Neutrophil count decreased [Unknown]

NARRATIVE: CASE EVENT DATE: 20110415
